FAERS Safety Report 9970810 (Version 1)
Quarter: 2014Q1

REPORT INFORMATION
  Report Type: Report from Study
  Country: US (occurrence: US)
  Receive Date: 20140306
  Receipt Date: 20140306
  Transmission Date: 20141002
  Serious: No
  Sender: FDA-Public Use
  Company Number: US-ABBVIE-13P-163-1151756-00

PATIENT
  Age: 50 Year
  Sex: Female
  Weight: 76.27 kg

DRUGS (4)
  1. HUMIRA [Suspect]
     Indication: RHEUMATOID ARTHRITIS
     Dates: start: 201304, end: 201304
  2. PREDNISONE [Concomitant]
     Indication: RHEUMATOID ARTHRITIS
  3. HYDROCODONE [Concomitant]
     Indication: PAIN
  4. LORAZEPAM [Concomitant]
     Indication: ANXIETY

REACTIONS (3)
  - Constipation [Recovered/Resolved]
  - Flatulence [Recovered/Resolved]
  - Viral infection [Recovered/Resolved]
